FAERS Safety Report 7762518-3 (Version None)
Quarter: 2011Q3

REPORT INFORMATION
  Report Type: 
  Country: None (occurrence: None)
  Receive Date: 20110920
  Receipt Date: 20110603
  Transmission Date: 20111222
  Serious: No
  Sender: FDA-Public Use
  Company Number: US-MYLANLABS-2011S1011827

PATIENT
  Age: 58 Year
  Sex: Female

DRUGS (2)
  1. ANASTROZOLE [Suspect]
     Indication: BREAST CANCER
     Route: 048
     Dates: start: 20110602, end: 20110602
  2. ANASTROZOLE [Suspect]
     Route: 048
     Dates: start: 20110602, end: 20110602

REACTIONS (3)
  - HEADACHE [None]
  - HYPOAESTHESIA [None]
  - REACTION TO DRUG EXCIPIENTS [None]
